FAERS Safety Report 7740341-3 (Version None)
Quarter: 2011Q3

REPORT INFORMATION
  Report Type: 
  Country: None (occurrence: None)
  Receive Date: 20110909
  Receipt Date: 20110831
  Transmission Date: 20111222
  Serious: Yes (Life-Threatening)
  Sender: FDA-Public Use
  Company Number: GB-ABBOTT-96H-167-0071206-00

PATIENT
  Age: 5 Year
  Sex: Male

DRUGS (2)
  1. SEVOFLURANE [Suspect]
     Indication: ANAESTHESIA
     Dosage: 4-8%
     Route: 055
     Dates: start: 19960501, end: 19960501
  2. ENFLURANE [Suspect]
     Indication: ANAESTHESIA
     Dosage: 5%
     Route: 055
     Dates: start: 19960501, end: 19960501

REACTIONS (2)
  - APNOEA [None]
  - HYPERTONIA [None]
